FAERS Safety Report 5074483-0 (Version None)
Quarter: 2006Q3

REPORT INFORMATION
  Report Type: 
  Country: None (occurrence: None)
  Receive Date: 20060714
  Receipt Date: 20060322
  Transmission Date: 20061208
  Serious: No
  Sender: FDA-Public Use
  Company Number: 2006SP001348

PATIENT
  Age: 68 Year
  Sex: Male
  Weight: 81.6475 kg

DRUGS (7)
  1. LUNESTA [Suspect]
     Indication: INSOMNIA
     Dosage: 3 MG;ORAL
     Route: 048
     Dates: start: 20060320
  2. TEMAZEPAM [Concomitant]
  3. GLYBURIDE [Concomitant]
  4. LISINOPRIL [Concomitant]
  5. MINOXIDIL [Concomitant]
  6. TAMSULOSIN HCL [Concomitant]
  7. TRAVATAN [Concomitant]

REACTIONS (3)
  - FEELING HOT [None]
  - INSOMNIA [None]
  - TREMOR [None]
